FAERS Safety Report 6383386-0 (Version None)
Quarter: 2009Q4

REPORT INFORMATION
  Report Type: 
  Country: None (occurrence: None)
  Receive Date: 20091001
  Receipt Date: 20070709
  Transmission Date: 20100525
  Serious: Yes (Other)
  Sender: FDA-Public Use
  Company Number: US-ASTRAZENECA-2006UW26742

PATIENT
  Age: 44 Year
  Sex: Female
  Weight: 145.1 kg

DRUGS (7)
  1. SEROQUEL [Suspect]
     Indication: DEPRESSION
     Dosage: 25-300 MG
     Route: 048
     Dates: start: 20010808
  2. SEROQUEL [Suspect]
     Indication: SLEEP DISORDER
     Dosage: 25-300 MG
     Route: 048
     Dates: start: 20010808
  3. SEROQUEL [Suspect]
     Dosage: 25 MG, TOTAL DAILY DOSE 300 MG
     Route: 048
     Dates: start: 20020101
  4. SEROQUEL [Suspect]
     Dosage: 25 MG, TOTAL DAILY DOSE 300 MG
     Route: 048
     Dates: start: 20020101
  5. RISPERDAL [Concomitant]
  6. PAXIL [Concomitant]
  7. NAPROXEN [Concomitant]
     Route: 048
     Dates: start: 20031125

REACTIONS (4)
  - DIABETES MELLITUS [None]
  - DIABETES MELLITUS INADEQUATE CONTROL [None]
  - DIABETIC NEUROPATHY [None]
  - KETOACIDOSIS [None]
